FAERS Safety Report 17353836 (Version 1)
Quarter: 2020Q1

REPORT INFORMATION
  Report Type: Spontaneous
  Country: US (occurrence: US)
  Receive Date: 20200130
  Receipt Date: 20200130
  Transmission Date: 20200409
  Serious: Yes (Death)
  Sender: FDA-Public Use
  Company Number: None

PATIENT
  Age: 62 Year
  Sex: Male
  Weight: 67.5 kg

DRUGS (1)
  1. GABAPENTIN. [Suspect]
     Active Substance: GABAPENTIN
     Indication: HYPOAESTHESIA
     Dates: start: 20191107, end: 20200102

REACTIONS (5)
  - Confusional state [None]
  - Dyspnoea [None]
  - Heart rate abnormal [None]
  - Sciatica [None]
  - Hypoaesthesia [None]

NARRATIVE: CASE EVENT DATE: 20191107
